FAERS Safety Report 5104535-8 (Version None)
Quarter: 2006Q3

REPORT INFORMATION
  Report Type: 
  Country: None (occurrence: None)
  Receive Date: 20060731
  Receipt Date: 20050629
  Transmission Date: 20061208
  Serious: Yes (Other)
  Sender: FDA-Public Use
  Company Number: US-JNJFOC-20050700179

PATIENT
  Age: 23 Year
  Sex: Male
  Weight: 86.1834 kg

DRUGS (7)
  1. RISPERDAL CONSTA [Suspect]
     Indication: HEAD INJURY
     Dosage: 25 MG, 1 IN 2 WEEK, INTRA-MUSCULAR
     Route: 030
     Dates: start: 20050101, end: 20050301
  2. RISPERDAL CONSTA [Suspect]
     Indication: PSYCHOTIC DISORDER
     Dosage: 25 MG, 1 IN 2 WEEK, INTRA-MUSCULAR
     Route: 030
     Dates: start: 20050101, end: 20050301
  3. RISPERDAL CONSTA [Suspect]
     Indication: HEAD INJURY
     Dosage: 25 MG, 1 IN 2 WEEK, INTRA-MUSCULAR
     Route: 030
     Dates: start: 20050601
  4. RISPERDAL CONSTA [Suspect]
     Indication: PSYCHOTIC DISORDER
     Dosage: 25 MG, 1 IN 2 WEEK, INTRA-MUSCULAR
     Route: 030
     Dates: start: 20050601
  5. PAXIL (PAROXETINE HYDROCHLORIDE) UNKNOWN [Concomitant]
  6. DEPAKOTE (VALPROATE SEMISODIUM) UNKNOWN [Concomitant]
  7. RISPERIDONE [Concomitant]

REACTIONS (6)
  - ANXIETY [None]
  - INCREASED APPETITE [None]
  - INSOMNIA [None]
  - JUDGEMENT IMPAIRED [None]
  - MANIA [None]
  - WEIGHT INCREASED [None]
